FAERS Safety Report 5878522-6 (Version None)
Quarter: 2008Q3

REPORT INFORMATION
  Report Type: 
  Country: None (occurrence: None)
  Receive Date: 20080911
  Receipt Date: 20080822
  Transmission Date: 20090109
  Serious: Yes (Other)
  Sender: FDA-Public Use
  Company Number: US-GENENTECH-267658

PATIENT
  Age: 55 Year
  Sex: Male

DRUGS (3)
  1. RITUXAN [Suspect]
     Indication: MYOSITIS
     Dosage: 375 MG/M2, UNK
     Route: 042
  2. MYCOPHENOLATE MOFETIL [Concomitant]
     Indication: DRUG USE FOR UNKNOWN INDICATION
  3. PREDNISONE TAB [Concomitant]
     Indication: DRUG USE FOR UNKNOWN INDICATION

REACTIONS (1)
  - MYCOBACTERIAL INFECTION [None]
